FAERS Safety Report 7716832-8 (Version None)
Quarter: 2011Q3

REPORT INFORMATION
  Report Type: 
  Country: None (occurrence: None)
  Receive Date: 20110829
  Receipt Date: 20110816
  Transmission Date: 20111222
  Serious: Yes (Hospitalization)
  Sender: FDA-Public Use
  Company Number: US-UCBSA-039299

PATIENT
  Sex: Male
  Weight: 62.127 kg

DRUGS (9)
  1. CALCIUM CARBONATE [Concomitant]
     Dates: start: 20110308
  2. VITAMIN D [Concomitant]
     Dosage: SINGLE DOSE: 200UNITS, DAILY DOSE: 400UNITS
     Dates: start: 20110308
  3. VITAMIN D [Concomitant]
     Indication: VITAMIN SUPPLEMENTATION
     Dosage: SINGLE DOSE:200 UNITS, DAILY DOSE: 400 UNITS
     Dates: start: 20090115, end: 20091230
  4. MENTHOL [Concomitant]
     Indication: PAIN IN EXTREMITY
     Dosage: 10 % AS NEEDED
     Dates: start: 20110308
  5. CALCIUM CARBONATE [Concomitant]
     Indication: VITAMIN SUPPLEMENTATION
     Dates: start: 20090115, end: 20101230
  6. M-SALICYLATE [Concomitant]
     Indication: PAIN IN EXTREMITY
     Dosage: 15 % AS NEEDED
     Dates: start: 20110308
  7. LACOSAMIDE [Suspect]
     Indication: EPILEPSY
     Route: 048
     Dates: start: 20100310
  8. CLOTRIMAZOLE [Concomitant]
     Indication: NAIL BED INFECTION FUNGAL
     Dosage: 1 % AS NEEDED
     Dates: start: 20110308
  9. PNEUMOVAX 23 [Concomitant]
     Indication: INFLUENZA
     Dates: start: 20110308, end: 20110308

REACTIONS (1)
  - CONVULSION [None]
